FAERS Safety Report 10233317 (Version 1)
Quarter: 2014Q2

REPORT INFORMATION
  Report Type: Spontaneous
  Country: GB (occurrence: GB)
  Receive Date: 20140612
  Receipt Date: 20140612
  Transmission Date: 20141212
  Serious: Yes (Other)
  Sender: FDA-Public Use
  Company Number: GB-WATSON-2014-11992

PATIENT
  Age: 42 Year
  Sex: Male

DRUGS (31)
  1. CARBAMAZEPINE (UNKNOWN) [Suspect]
     Indication: CONVULSION
     Dosage: 200 MG, BID
     Route: 065
     Dates: start: 1988
  2. CARBAMAZEPINE (UNKNOWN) [Suspect]
     Dosage: 100 MG, BID
     Route: 065
  3. CARBAMAZEPINE (UNKNOWN) [Suspect]
     Dosage: 300 MG, BID
     Route: 065
  4. CARBAMAZEPINE (UNKNOWN) [Suspect]
     Dosage: 300 MG, BID
     Route: 065
  5. CARBAMAZEPINE (UNKNOWN) [Suspect]
     Dosage: 200 MG, BID
     Route: 065
  6. LAMOTRIGINE (UNKNOWN) [Suspect]
     Indication: PRODUCT USED FOR UNKNOWN INDICATION
     Dosage: UNK
     Route: 065
     Dates: start: 199305
  7. LAMOTRIGINE (UNKNOWN) [Suspect]
     Dosage: 500 MG/24 HOURS
     Route: 065
  8. LAMOTRIGINE (UNKNOWN) [Suspect]
     Dosage: 200 MG, UNKNOWN
     Route: 065
  9. LAMOTRIGINE (UNKNOWN) [Suspect]
     Dosage: 300 MG/24 HOURS
     Route: 065
  10. LAMOTRIGINE (UNKNOWN) [Suspect]
     Dosage: 150 MG, BID
     Route: 065
  11. TOPIRAMATE (UNKNOWN) [Suspect]
     Indication: PRODUCT USED FOR UNKNOWN INDICATION
     Dosage: 25 MG, QOD
     Route: 065
  12. VALPROIC ACID (UNKNOWN) [Suspect]
     Indication: PRODUCT USED FOR UNKNOWN INDICATION
     Dosage: UNK
     Route: 065
     Dates: start: 199305
  13. VALPROIC ACID (UNKNOWN) [Suspect]
     Dosage: 400 MG/24 HOURS
     Route: 065
  14. LAMICTAL [Suspect]
     Indication: EPILEPSY
     Dosage: UNK UKN, UNK
     Route: 065
     Dates: start: 199502
  15. LAMICTAL [Suspect]
     Dosage: 400 MG, UNKNOWN
     Route: 065
     Dates: start: 200309
  16. LAMICTAL [Suspect]
     Dosage: 300 MG, DAILY
     Route: 065
  17. LAMICTAL [Suspect]
     Dosage: 275 MG, UNKNOWN;REDUCED DOSE BY 25 MG
     Route: 065
  18. LAMICTAL [Suspect]
     Dosage: 250 MG, UNKNOWN;REDUCED BY ANOTHER 250 MG (250MG)
     Route: 065
  19. LAMICTAL [Suspect]
     Dosage: 225 MG, UNKNOWN;(TAKEN DOWN ANOTHER 25 MG FROM 250 MG)
     Route: 065
  20. MIDAZOLAM [Suspect]
     Indication: PRODUCT USED FOR UNKNOWN INDICATION
     Dosage: UNK
     Route: 002
  21. TEGRETOL [Suspect]
     Indication: EPILEPSY
     Dosage: 300 MG, BID (300MG IN THE MORNING AND 300 MG AT NIGHT)
     Route: 065
     Dates: start: 1989, end: 20140101
  22. TEGRETOL [Suspect]
     Dosage: 300 MG, BID (300MG IN THE MORNING AND 300 MG AT NIGHT)
     Route: 065
     Dates: start: 20140206
  23. TEGRETOL [Suspect]
     Dosage: 400 MG, UNKNOWN
     Route: 065
  24. TEGRETOL [Suspect]
     Dosage: 200 MG, UNKNOWN
     Route: 065
  25. TEGRETOL [Suspect]
     Dosage: 500 MG, UNKNOWN
     Route: 065
  26. TEGRETOL [Suspect]
     Dosage: 500 MG, UNKNOWN
     Route: 065
  27. TEGRETOL [Suspect]
     Dosage: 400 MG, UNKNOWN
     Route: 065
  28. TEGRETOL [Suspect]
     Dosage: 600 MG, UNKNOWN
     Route: 065
  29. TEGRETOL [Suspect]
     Dosage: 1000 MG, UNKNOWN
     Route: 065
     Dates: start: 200309, end: 20120511
  30. ADCAL D3 [Concomitant]
     Indication: PRODUCT USED FOR UNKNOWN INDICATION
     Dosage: 1 DF, DAILY
     Route: 048
  31. VITAMIN D                          /00107901/ [Concomitant]
     Indication: BONE DISORDER
     Dosage: 3 DF, DAILY
     Route: 048

REACTIONS (44)
  - Hallucination [Unknown]
  - Aggression [Unknown]
  - Agitation [Unknown]
  - Anxiety [Unknown]
  - Dyskinesia [Not Recovered/Not Resolved]
  - Balance disorder [Unknown]
  - Musculoskeletal stiffness [Unknown]
  - Drug level increased [Unknown]
  - Catatonia [Unknown]
  - Complex partial seizures [Unknown]
  - Insomnia [Unknown]
  - Diarrhoea [Unknown]
  - Distractibility [Unknown]
  - Emotional disorder [Unknown]
  - Cerebral ventricle dilatation [Unknown]
  - Euphoric mood [Unknown]
  - Convulsion [Unknown]
  - Epilepsy [Unknown]
  - Fear [Unknown]
  - Frustration [Unknown]
  - Gastrointestinal disorder [Unknown]
  - Gait disturbance [Unknown]
  - Psychotic disorder [Unknown]
  - Tonic clonic movements [Not Recovered/Not Resolved]
  - Petit mal epilepsy [Unknown]
  - Depressed level of consciousness [Unknown]
  - Bone density decreased [Unknown]
  - Microcephaly [Unknown]
  - Abnormal behaviour [Unknown]
  - Irritability [Unknown]
  - Emotional distress [Unknown]
  - Decreased appetite [Unknown]
  - Toxicity to various agents [Recovered/Resolved]
  - Malaise [Unknown]
  - Depressed mood [Unknown]
  - Staring [Unknown]
  - Hyperexplexia [Unknown]
  - Stress [Unknown]
  - Suspiciousness [Unknown]
  - Fatigue [Unknown]
  - Generalised tonic-clonic seizure [Unknown]
  - Tremor [Unknown]
  - Upper respiratory tract infection [Unknown]
  - Ataxia [Not Recovered/Not Resolved]
